FAERS Safety Report 26115444 (Version 1)
Quarter: 2025Q4

REPORT INFORMATION
  Report Type: Spontaneous
  Country: EU (occurrence: EU)
  Receive Date: 20251203
  Receipt Date: 20251203
  Transmission Date: 20260117
  Serious: Yes (Hospitalization)
  Sender: AUROBINDO
  Company Number: EU-AFSSAPS-CN2025001262

PATIENT
  Age: 51 Year
  Sex: Female
  Weight: 83 kg

DRUGS (1)
  1. TAMOXIFEN CITRATE [Suspect]
     Active Substance: TAMOXIFEN CITRATE
     Indication: Breast cancer
     Dosage: 1 DOSAGE FORM, ONCE A DAY
     Dates: start: 20240604, end: 20251020

REACTIONS (1)
  - Fibrin D dimer increased [Recovered/Resolved]

NARRATIVE: CASE EVENT DATE: 20250915
